FAERS Safety Report 4169008 (Version 2)
Quarter: 2013Q1

REPORT INFORMATION
  Report Type: Spontaneous
  Country: US (occurrence: US)
  Receive Date: 20040702
  Receipt Date: 20130320
  Transmission Date: 20140127
  Serious: Yes (Other)
  Sender: FDA-Public Use
  Company Number: US-JNJFOC-20040607624

PATIENT
  Sex: Female

DRUGS (5)
  1. MOTRIN IB [Suspect]
     Route: 048
  2. MOTRIN IB [Suspect]
     Indication: PRODUCT USED FOR UNKNOWN INDICATION
     Route: 048
     Dates: start: 200303
  3. LEXAPRO [Concomitant]
     Dates: start: 200303
  4. PROVIGIL [Concomitant]
     Dates: start: 200303
  5. PAIN MEDICATION [Concomitant]
     Dates: start: 200303

REACTIONS (2)
  - Dependence [Not Recovered/Not Resolved]
  - Drug ineffective [Not Recovered/Not Resolved]
